FAERS Safety Report 5366392-4 (Version None)
Quarter: 2007Q2

REPORT INFORMATION
  Report Type: 
  Country: None (occurrence: None)
  Receive Date: 20070622
  Receipt Date: 20070614
  Transmission Date: 20071010
  Serious: Yes (Other)
  Sender: FDA-Public Use
  Company Number: PHFR2007GB01908

PATIENT
  Sex: Male

DRUGS (2)
  1. CLOZARIL [Suspect]
     Dosage: UNK, UNK
     Route: 048
  2. SULPIRIDE [Concomitant]

REACTIONS (2)
  - DYSARTHRIA [None]
  - HEMIPARESIS [None]
